FAERS Safety Report 6027169-X (Version None)
Quarter: 2009Q1

REPORT INFORMATION
  Report Type: 
  Country: None (occurrence: None)
  Receive Date: 20090105
  Receipt Date: 20081225
  Transmission Date: 20090719
  Serious: Yes (Hospitalization)
  Sender: FDA-Public Use
  Company Number: JP-PFIZER INC-2008161170

PATIENT

DRUGS (6)
  1. SILDENAFIL CITRATE [Suspect]
     Indication: PULMONARY HYPERTENSION
     Dosage: 40 MG, 2X/DAY
     Dates: start: 20080509
  2. FLOLAN [Concomitant]
     Dosage: UNK
     Route: 042
  3. TRACLEER [Concomitant]
     Dosage: UNK
     Route: 048
  4. BERAPROST SODIUM [Concomitant]
     Dosage: UNK
     Route: 048
     Dates: start: 20080314
  5. EPINASTINE HYDROCHLORIDE [Concomitant]
     Route: 048
     Dates: start: 20080605, end: 20080704
  6. FLUNASE /JPN/ [Concomitant]
     Dates: start: 20080605, end: 20080704

REACTIONS (1)
  - LIVER DISORDER [None]
